FAERS Safety Report 4879889-8 (Version None)
Quarter: 2006Q1

REPORT INFORMATION
  Report Type: 
  Country: None (occurrence: None)
  Receive Date: 20060113
  Receipt Date: 20050609
  Transmission Date: 20060701
  Serious: Yes (Hospitalization)
  Sender: FDA-Public Use
  Company Number: US-MERCK-0506USA01501

PATIENT
  Age: 58 Year
  Sex: Male
  Weight: 84 kg

DRUGS (2)
  1. VIOXX [Suspect]
     Indication: SHOULDER PAIN
     Route: 048
     Dates: start: 19991214, end: 20040930
  2. VIOXX [Suspect]
     Indication: SPINAL OSTEOARTHRITIS
     Route: 048
     Dates: start: 19991214, end: 20040930

REACTIONS (4)
  - ACUTE MYOCARDIAL INFARCTION [None]
  - INTESTINAL FUNCTIONAL DISORDER [None]
  - PROSTATE CANCER [None]
  - RADIOTHERAPY [None]
